FAERS Safety Report 9124578 (Version 4)
Quarter: 2013Q4

REPORT INFORMATION
  Report Type: Spontaneous
  Country: US (occurrence: US)
  Receive Date: 20130227
  Receipt Date: 20131122
  Transmission Date: 20140711
  Serious: Yes (Hospitalization)
  Sender: FDA-Public Use
  Company Number: US-B.I. PHARMACEUTICALS,INC./RIDGEFIELD-2013-BI-04666BP

PATIENT
  Sex: Male
  Weight: 68.95 kg

DRUGS (7)
  1. PRADAXA [Suspect]
     Indication: ATRIAL FIBRILLATION
     Dosage: 300 MG
     Route: 048
     Dates: end: 20111101
  2. OMEPRAZOLE [Concomitant]
     Dates: start: 2004
  3. ALBUTEROL INHALER [Concomitant]
     Dates: start: 2004
  4. METOPROLOL TARTRATE [Concomitant]
     Dates: start: 2004
  5. LISINOPRIL [Concomitant]
  6. TYLENOL [Concomitant]
  7. MAALOX [Concomitant]

REACTIONS (6)
  - Upper gastrointestinal haemorrhage [Recovered/Resolved]
  - Gastritis [Recovered/Resolved]
  - Anaemia [Unknown]
  - Haemorrhagic stroke [Unknown]
  - Cerebral haemorrhage [Unknown]
  - Epistaxis [Unknown]
